FAERS Safety Report 5067896-4 (Version None)
Quarter: 2006Q3

REPORT INFORMATION
  Report Type: 
  Country: None (occurrence: None)
  Receive Date: 20060714
  Receipt Date: 20060313
  Transmission Date: 20061208
  Serious: Yes (Other)
  Sender: FDA-Public Use
  Company Number: HQWYE318314MAR06

PATIENT
  Age: 46 Year
  Sex: Female

DRUGS (4)
  1. ADVIL [Suspect]
     Indication: HEADACHE
     Dosage: ^2 DOSE FORMS X 1^ ORAL - SEE IMAGE
     Route: 048
     Dates: start: 20060303, end: 20060303
  2. ADVIL [Suspect]
     Indication: HEADACHE
     Dosage: ^2 DOSE FORMS X 1^ ORAL - SEE IMAGE
     Route: 048
     Dates: start: 20060305, end: 20060305
  3. ALUMINUM HYDROXIDE AND MAGNESIUM TRISILICATE [Suspect]
     Indication: DYSPEPSIA
     Dosage: 2 TEASPOONS X 1, ORAL
     Route: 048
     Dates: start: 20060303, end: 20060303
  4. .. [Concomitant]

REACTIONS (5)
  - ANAPHYLACTIC REACTION [None]
  - DYSPNOEA [None]
  - HYPERSENSITIVITY [None]
  - SWELLING FACE [None]
  - URTICARIA [None]
